FAERS Safety Report 6795001-2 (Version None)
Quarter: 2010Q2

REPORT INFORMATION
  Report Type: 
  Country: None (occurrence: None)
  Receive Date: 20100625
  Receipt Date: 20100614
  Transmission Date: 20101027
  Serious: Yes (Other)
  Sender: FDA-Public Use
  Company Number: JP-PFIZER INC-2010061596

PATIENT
  Age: 79 Year
  Sex: Female

DRUGS (1)
  1. AZULFIDINE [Suspect]
     Dosage: 500 MG, 2X/DAY
     Route: 048

REACTIONS (2)
  - DEMENTIA [None]
  - YELLOW SKIN [None]
